FAERS Safety Report 7959038-X (Version None)
Quarter: 2011Q4

REPORT INFORMATION
  Report Type: 
  Country: None (occurrence: None)
  Receive Date: 20111206
  Receipt Date: 20111201
  Transmission Date: 20120403
  Serious: Yes (Hospitalization)
  Sender: FDA-Public Use
  Company Number: AT-PFIZER INC-2011294074

PATIENT
  Sex: Male

DRUGS (4)
  1. ESCITALOPRAM [Concomitant]
  2. MIRTAZAPINE [Concomitant]
     Dosage: 30 MG, UNK
  3. ARICEPT [Concomitant]
     Dosage: 5 MG, UNK
  4. LYRICA [Suspect]
     Dosage: 75 MG, 2X/DAY
     Route: 048

REACTIONS (3)
  - QUADRIPLEGIA [None]
  - SOMNOLENCE [None]
  - CONFUSIONAL STATE [None]
